FAERS Safety Report 13066060 (Version 2)
Quarter: 2017Q2

REPORT INFORMATION
  Report Type: Spontaneous
  Country: US (occurrence: US)
  Receive Date: 20161227
  Receipt Date: 20170516
  Transmission Date: 20170830
  Serious: No
  Sender: FDA-Public Use
  Company Number: US-TEVA-723447ACC

PATIENT
  Sex: Female

DRUGS (1)
  1. NUVIGIL [Suspect]
     Active Substance: ARMODAFINIL
     Route: 065

REACTIONS (2)
  - Hypersensitivity [Unknown]
  - Tachycardia [Recovered/Resolved]
